FAERS Safety Report 9154099 (Version 2)
Quarter: 2013Q2

REPORT INFORMATION
  Report Type: Spontaneous
  Country: US (occurrence: None)
  Receive Date: 20130307
  Receipt Date: 20130405
  Transmission Date: 20140414
  Serious: Yes (Death, Hospitalization)
  Sender: FDA-Public Use
  Company Number: 2013-0313

PATIENT
  Age: 49 Year
  Sex: Male

DRUGS (1)
  1. KYPROLIS [Suspect]
     Indication: PLASMA CELL MYELOMA
     Dates: start: 2012, end: 20121212

REACTIONS (3)
  - Myocardial infarction [None]
  - Pulmonary hypertension [None]
  - Plasma cell myeloma [None]
